FAERS Safety Report 4276271-1 (Version None)
Quarter: 2004Q1

REPORT INFORMATION
  Report Type: 
  Country: None (occurrence: None)
  Receive Date: 20040121
  Receipt Date: 20031210
  Transmission Date: 20041129
  Serious: Yes (Hospitalization)
  Sender: FDA-Public Use
  Company Number: CH-ROCHE-353649

PATIENT
  Age: 55 Year
  Sex: Male

DRUGS (2)
  1. CAPECITABINE [Suspect]
     Dosage: FOR 2 WEEKS OF A 3 WEEK CYCLE.
     Route: 048
     Dates: start: 20031124
  2. GEMCITABINE [Suspect]
     Dosage: GIVEN ON DAYS 1 AND 8 OF EACH 3 WEEK CYCLE.
     Route: 042
     Dates: start: 20031124

REACTIONS (4)
  - DISEASE PROGRESSION [None]
  - FEBRILE NEUTROPENIA [None]
  - MALIGNANT NEOPLASM PROGRESSION [None]
  - PERITONITIS BACTERIAL [None]
